FAERS Safety Report 7264121-0 (Version None)
Quarter: 2011Q1

REPORT INFORMATION
  Report Type: 
  Country: None (occurrence: None)
  Receive Date: 20110130
  Receipt Date: 20110120
  Transmission Date: 20110831
  Serious: Yes (Hospitalization)
  Sender: FDA-Public Use
  Company Number: FR-BRISTOL-MYERS SQUIBB COMPANY-15503261

PATIENT
  Age: 15 Year
  Sex: Male
  Weight: 40 kg

DRUGS (19)
  1. NEUPOGEN [Suspect]
     Indication: CHEMOTHERAPY
     Route: 042
     Dates: start: 20091021, end: 20091030
  2. ZOPHREN [Concomitant]
  3. ACETAMINOPHEN [Concomitant]
  4. AMPHOTERICIN B [Suspect]
     Indication: INFECTION
     Route: 042
     Dates: start: 20091026
  5. PIPERACILLIN AND TAZOBACTAM [Suspect]
     Indication: INFECTION
     Route: 042
     Dates: start: 20091021, end: 20091028
  6. SERTRALINE HYDROCHLORIDE [Concomitant]
  7. ALPRAZOLAM [Concomitant]
  8. ZELITREX [Concomitant]
     Dates: start: 20091014
  9. TRIMETHOPRIM + SULFAMETHOXAZOLE [Concomitant]
     Dates: start: 20091023
  10. TIENAM [Concomitant]
     Route: 042
     Dates: start: 20091028
  11. MERCAPTOPURINE [Concomitant]
  12. METRONIDAZOLE [Concomitant]
     Dates: start: 20091024
  13. AMIKACIN [Concomitant]
     Route: 042
     Dates: start: 20091021
  14. OGAST [Concomitant]
  15. PAROXETINE HCL [Concomitant]
  16. CHLORPROMAZINE HCL [Concomitant]
  17. INIPOMP [Concomitant]
  18. ESOMEPRAZOLE [Concomitant]
  19. CLONAZEPAM [Concomitant]

REACTIONS (2)
  - JAUNDICE [None]
  - CHOLESTASIS [None]
